FAERS Safety Report 4846891-1 (Version None)
Quarter: 2005Q4

REPORT INFORMATION
  Report Type: 
  Country: None (occurrence: None)
  Receive Date: 20051202
  Receipt Date: 20050913
  Transmission Date: 20060501
  Serious: Yes (Other)
  Sender: FDA-Public Use
  Company Number: 2005US000757

PATIENT
  Age: 35 Year
  Sex: Male

DRUGS (13)
  1. AMBISOME [Suspect]
     Indication: MUCORMYCOSIS
     Dosage: 6.00 MG/KG, UID/QD
     Dates: start: 20050509, end: 20050518
  2. POSACONAZOLE [Suspect]
     Indication: FUNGAL INFECTION
     Dosage: 200.00 MG QID ORAL
     Route: 048
     Dates: start: 20050513, end: 20050518
  3. TRAZODONE HCL [Suspect]
     Indication: DEPRESSION
     Dosage: 100.00 MG
     Dates: start: 20050515, end: 20050515
  4. FLUOXETINE [Suspect]
     Indication: DEPRESSION
     Dosage: 20.00 MG, UID/QD
     Dates: start: 20050426, end: 20050515
  5. PARACETAMOL (PARACETAMOL) [Suspect]
     Indication: PYREXIA
     Dosage: PRN, IV NOS
     Route: 042
     Dates: start: 20050503, end: 20050518
  6. GLEEVEC [Suspect]
     Dates: start: 20050504, end: 20050518
  7. OMEPRAZOLE [Suspect]
     Dosage: 20.00 MG
     Dates: start: 20050501
  8. VORICONAZOLE [Concomitant]
  9. CASPOFUNGIN [Concomitant]
  10. VINCRISTINE [Concomitant]
  11. DAUNORUBICIN [Concomitant]
  12. CYTARABINE [Concomitant]
  13. METHOTREXATE [Concomitant]

REACTIONS (8)
  - DRUG INTERACTION [None]
  - HEPATIC FUNCTION ABNORMAL [None]
  - HEPATITIS TOXIC [None]
  - MITRAL VALVE INCOMPETENCE [None]
  - MUCORMYCOSIS [None]
  - PLEURAL EFFUSION [None]
  - PROTHROMBIN TIME ABNORMAL [None]
  - VIRAL INFECTION [None]
